FAERS Safety Report 20007318 (Version 1)
Quarter: 2021Q4

REPORT INFORMATION
  Report Type: Spontaneous
  Country: US (occurrence: US)
  Receive Date: 20211028
  Receipt Date: 20211028
  Transmission Date: 20220303
  Serious: Yes (Other)
  Sender: FDA-Public Use
  Company Number: US-SA-2021SA354872

PATIENT
  Age: 46 Year
  Sex: Female

DRUGS (2)
  1. DUPIXENT [Suspect]
     Active Substance: DUPILUMAB
     Indication: Dermatitis atopic
     Dosage: 300 MG, QOW; DOSE: 300 MG/2ML
     Route: 058
     Dates: start: 20180125
  2. KEVZARA [Concomitant]
     Active Substance: SARILUMAB
     Dosage: UNK

REACTIONS (1)
  - Carpal tunnel syndrome [Not Recovered/Not Resolved]
